FAERS Safety Report 4436809-8 (Version None)
Quarter: 2004Q3

REPORT INFORMATION
  Report Type: 
  Country: None (occurrence: None)
  Receive Date: 20040830
  Receipt Date: 20040826
  Transmission Date: 20050211
  Serious: Yes (Death)
  Sender: FDA-Public Use
  Company Number: GB-BRISTOL-MYERS SQUIBB COMPANY-12683777

PATIENT
  Age: 64 Year
  Sex: Male
  Weight: 176 kg

DRUGS (3)
  1. PACLITAXEL [Suspect]
     Indication: BLADDER CANCER
  2. CISPLATIN [Suspect]
     Indication: BLADDER CANCER
  3. GEMCITABINE [Suspect]
     Indication: BLADDER CANCER

REACTIONS (1)
  - RENAL FAILURE CHRONIC [None]
